FAERS Safety Report 10905795 (Version 3)
Quarter: 2015Q2

REPORT INFORMATION
  Report Type: Spontaneous
  Country: US (occurrence: US)
  Receive Date: 20150311
  Receipt Date: 20150422
  Transmission Date: 20150821
  Serious: Yes (Other)
  Sender: FDA-Public Use
  Company Number: US-TEVA-532035USA

PATIENT
  Sex: Female
  Weight: 65.83 kg

DRUGS (5)
  1. FLUOXETINE [Suspect]
     Active Substance: FLUOXETINE\FLUOXETINE HYDROCHLORIDE
     Indication: PANIC ATTACK
  2. XANAX [Concomitant]
     Active Substance: ALPRAZOLAM
     Dosage: 1/2 BID PRN
  3. FLUOXETINE [Suspect]
     Active Substance: FLUOXETINE\FLUOXETINE HYDROCHLORIDE
     Indication: DEPRESSION
  4. FLUOXETINE [Suspect]
     Active Substance: FLUOXETINE\FLUOXETINE HYDROCHLORIDE
     Indication: PANIC DISORDER
     Route: 065
     Dates: start: 2014
  5. FLUOXETINE [Suspect]
     Active Substance: FLUOXETINE\FLUOXETINE HYDROCHLORIDE
     Indication: ANXIETY
     Dosage: 2 - 3 TIMES A DAY
     Dates: start: 20141204

REACTIONS (16)
  - Anxiety [Not Recovered/Not Resolved]
  - Transient ischaemic attack [Recovered/Resolved]
  - Paraesthesia [Not Recovered/Not Resolved]
  - Depression [Not Recovered/Not Resolved]
  - Tinnitus [Unknown]
  - Feeling abnormal [Not Recovered/Not Resolved]
  - Tinnitus [Not Recovered/Not Resolved]
  - Dizziness [Not Recovered/Not Resolved]
  - Dizziness [Unknown]
  - Product substitution issue [Unknown]
  - Dry mouth [Not Recovered/Not Resolved]
  - Headache [Unknown]
  - Peripheral coldness [Unknown]
  - Drug ineffective [Unknown]
  - Blindness [Unknown]
  - Panic attack [Unknown]

NARRATIVE: CASE EVENT DATE: 2015
